FAERS Safety Report 7891384-0 (Version None)
Quarter: 2011Q4

REPORT INFORMATION
  Report Type: 
  Country: None (occurrence: None)
  Receive Date: 20111103
  Receipt Date: 20110802
  Transmission Date: 20120403
  Serious: No
  Sender: FDA-Public Use
  Company Number: US-AMGEN-USASP2011039139

PATIENT
  Age: 39 Year
  Sex: Female

DRUGS (2)
  1. TREXALL [Concomitant]
     Dates: start: 20050101
  2. ENBREL [Suspect]
     Indication: RHEUMATOID ARTHRITIS
     Dosage: 50 MG, QWK
     Dates: start: 20051001

REACTIONS (3)
  - SLEEP APNOEA SYNDROME [None]
  - THROAT IRRITATION [None]
  - RHEUMATOID ARTHRITIS [None]
